FAERS Safety Report 7547729-4 (Version None)
Quarter: 2011Q2

REPORT INFORMATION
  Report Type: 
  Country: None (occurrence: None)
  Receive Date: 20110614
  Receipt Date: 20110504
  Transmission Date: 20111010
  Serious: No
  Sender: FDA-Public Use
  Company Number: US-BAYER-2011-039736

PATIENT
  Sex: Female

DRUGS (2)
  1. ALEVE [Suspect]
     Indication: HEADACHE
     Route: 048
  2. EXCEDRIN (MIGRAINE) [Concomitant]
     Indication: HEADACHE
     Route: 048

REACTIONS (1)
  - NO ADVERSE EVENT [None]
